FAERS Safety Report 8300338-1 (Version None)
Quarter: 2012Q2

REPORT INFORMATION
  Report Type: 
  Country: None (occurrence: None)
  Receive Date: 20120417
  Receipt Date: 20120409
  Transmission Date: 20120825
  Serious: Yes (Hospitalization, Other)
  Sender: FDA-Public Use
  Company Number: ADR-2012-00055

PATIENT
  Sex: Female

DRUGS (2)
  1. BACLOFEN [Suspect]
     Indication: CEREBRAL PALSY
     Dosage: 1400MCG/DAY ; 2000MCG/ML
  2. BACLOFEN [Suspect]
     Indication: MUSCLE SPASTICITY
     Dosage: 1400MCG/DAY ; 2000MCG/ML

REACTIONS (11)
  - PAIN [None]
  - CONFUSIONAL STATE [None]
  - MUSCLE RIGIDITY [None]
  - MEDICAL DEVICE COMPLICATION [None]
  - MUSCLE SPASTICITY [None]
  - MENTAL STATUS CHANGES [None]
  - DRUG WITHDRAWAL SYNDROME [None]
  - MUSCULOSKELETAL STIFFNESS [None]
  - AGITATION [None]
  - PRURITUS [None]
  - UNRESPONSIVE TO STIMULI [None]
